FAERS Safety Report 15319002 (Version 1)
Quarter: 2018Q3

REPORT INFORMATION
  Report Type: Spontaneous
  Country: US (occurrence: US)
  Receive Date: 20180820
  Receipt Date: 20180820
  Transmission Date: 20181010
  Serious: Yes (Hospitalization)
  Sender: FDA-Public Use
  Company Number: None

PATIENT
  Sex: Male

DRUGS (13)
  1. TAMSULOSIN [Concomitant]
     Active Substance: TAMSULOSIN
  2. FAMOTIDINE. [Concomitant]
     Active Substance: FAMOTIDINE
  3. DEXAMETHASON [Concomitant]
     Active Substance: DEXAMETHASONE
  4. VENTOLIN HFA [Concomitant]
     Active Substance: ALBUTEROL SULFATE
  5. TEMOZOLOMIDE. [Suspect]
     Active Substance: TEMOZOLOMIDE
     Indication: BRAIN NEOPLASM MALIGNANT
     Route: 048
     Dates: start: 20171027
  6. ZOLPIDEM [Concomitant]
     Active Substance: ZOLPIDEM\ZOLPIDEM TARTRATE
  7. XARELTO [Concomitant]
     Active Substance: RIVAROXABAN
  8. DIVALPROEX [Concomitant]
     Active Substance: DIVALPROEX SODIUM
  9. ONDANSETRON [Concomitant]
     Active Substance: ONDANSETRON
  10. KEPPRA [Concomitant]
     Active Substance: LEVETIRACETAM
  11. ALBUTEROL. [Concomitant]
     Active Substance: ALBUTEROL
  12. CELECOXIB. [Concomitant]
     Active Substance: CELECOXIB
  13. LEVETIRACETA [Concomitant]

REACTIONS (2)
  - Fatigue [None]
  - Pulmonary artery thrombosis [None]
